FAERS Safety Report 13058258 (Version 1)
Quarter: 2016Q4

REPORT INFORMATION
  Report Type: Spontaneous
  Country: US (occurrence: US)
  Receive Date: 20161223
  Receipt Date: 20161223
  Transmission Date: 20170207
  Serious: No
  Sender: FDA-Public Use
  Company Number: None

PATIENT
  Sex: Female

DRUGS (1)
  1. AMOX-CLAV 500-125MG [Suspect]
     Active Substance: AMOXICILLIN\CLAVULANATE POTASSIUM

REACTIONS (5)
  - Diarrhoea [None]
  - Product commingling [None]
  - Injury [None]
  - Abdominal discomfort [None]
  - Wrong drug administered [None]

NARRATIVE: CASE EVENT DATE: 2016
